FAERS Safety Report 5848414-7 (Version None)
Quarter: 2008Q3

REPORT INFORMATION
  Report Type: 
  Country: None (occurrence: None)
  Receive Date: 20080818
  Receipt Date: 20080807
  Transmission Date: 20090109
  Serious: Yes (Death, Life-Threatening, Other)
  Sender: FDA-Public Use
  Company Number: JP-ELI_LILLY_AND_COMPANY-JP200709005961

PATIENT
  Sex: Male
  Weight: 72.5 kg

DRUGS (8)
  1. PEMETREXED [Suspect]
     Indication: PLEURAL MESOTHELIOMA MALIGNANT
     Dosage: 925 MG, OTHER
     Route: 042
     Dates: start: 20070417, end: 20070904
  2. CISPLATIN [Suspect]
     Indication: PLEURAL MESOTHELIOMA MALIGNANT
     Dosage: 110 MG, OTHER
     Route: 042
     Dates: start: 20070612, end: 20070703
  3. CISPLATIN [Suspect]
     Dosage: 135 MG, OTHER
     Route: 042
     Dates: start: 20070724, end: 20070904
  4. PANVITAN [Concomitant]
     Dosage: 0.5 MG, DAILY (1/D)
     Route: 048
     Dates: start: 20070410, end: 20070718
  5. FOLIAMIN [Concomitant]
     Dosage: 0.5 MG, DAILY (1/D)
     Route: 048
     Dates: start: 20070719, end: 20071105
  6. VITAMIN B-12 [Concomitant]
     Dosage: 1 MG, DAILY (1/D)
     Route: 030
     Dates: start: 20070410, end: 20070410
  7. DECADRON /00016002/ [Concomitant]
     Indication: PROPHYLAXIS
     Dosage: 4 MG, DAILY (1/D)
     Route: 042
     Dates: start: 20070417, end: 20070906
  8. DECADRON /00016002/ [Concomitant]
     Dosage: 8 MG, DAILY (1/D)
     Route: 042
     Dates: start: 20070612, end: 20070904

REACTIONS (5)
  - HYPERCAPNIA [None]
  - MULTI-ORGAN FAILURE [None]
  - NEUTROPHIL COUNT DECREASED [None]
  - PNEUMONIA [None]
  - POLYNEUROPATHY [None]
